FAERS Safety Report 8871095 (Version 2)
Quarter: 2013Q1

REPORT INFORMATION
  Report Type: Spontaneous
  Country: DE (occurrence: DE)
  Receive Date: 20121029
  Receipt Date: 20130208
  Transmission Date: 20140127
  Serious: Yes (Other)
  Sender: FDA-Public Use
  Company Number: PHHY2012DE096512

PATIENT
  Sex: Female

DRUGS (3)
  1. ACLASTA [Suspect]
     Dosage: UNK UKN, UNK
     Route: 042
  2. ACLASTA [Suspect]
     Route: 042
  3. ACLASTA [Suspect]
     Route: 042
     Dates: start: 20121024

REACTIONS (2)
  - Hypertensive crisis [Not Recovered/Not Resolved]
  - Product quality issue [Unknown]
